FAERS Safety Report 8799080 (Version 1)
Quarter: 2012Q4

REPORT INFORMATION
  Report Type: 
  Country: US (occurrence: US)
  Receive Date: 20120920
  Receipt Date: 20120920
  Transmission Date: 20130627
  Serious: No
  Sender: FDA-Public Use
  Company Number: US-ASTRAZENECA-2011SE60438

PATIENT
  Age: 62 Year
  Sex: Female

DRUGS (13)
  1. LISINOPRIL [Suspect]
     Route: 048
  2. NEXIUM [Concomitant]
  3. BUMEX [Concomitant]
  4. FLONASE [Concomitant]
  5. METFORMIN HCL [Concomitant]
  6. DUONEB [Concomitant]
  7. HYDROCHLOROTHIAZIDE [Concomitant]
  8. AMLODIPINE BESYLATE [Concomitant]
  9. METOPROLOL TARTRATE [Concomitant]
  10. COLESTID [Concomitant]
  11. LOVASTATIN [Concomitant]
  12. MYCOLOG II CREA [Concomitant]
  13. LANTUS [Concomitant]

REACTIONS (7)
  - Diabetes mellitus inadequate control [Not Recovered/Not Resolved]
  - Essential hypertension [Not Recovered/Not Resolved]
  - Hypercholesterolaemia [Not Recovered/Not Resolved]
  - Multiple allergies [Unknown]
  - Respiratory disorder [Unknown]
  - Pain [Unknown]
  - Cough [Recovered/Resolved]
